FAERS Safety Report 17566858 (Version 2)
Quarter: 2020Q3

REPORT INFORMATION
  Report Type: Spontaneous
  Country: IT (occurrence: IT)
  Receive Date: 20200320
  Receipt Date: 20200727
  Transmission Date: 20201102
  Serious: Yes (Death, Other)
  Sender: FDA-Public Use
  Company Number: IT-SA-2020SA067800

PATIENT

DRUGS (1)
  1. CEREZYME [Suspect]
     Active Substance: IMIGLUCERASE
     Indication: GAUCHER^S DISEASE
     Dosage: UNK
     Route: 065
     Dates: start: 2016

REACTIONS (3)
  - Respiratory failure [Fatal]
  - Obesity [Unknown]
  - Hypertension [Unknown]

NARRATIVE: CASE EVENT DATE: 202002
